FAERS Safety Report 11894486 (Version 2)
Quarter: 2016Q1

REPORT INFORMATION
  Report Type: Spontaneous
  Country: GB (occurrence: GB)
  Receive Date: 20160107
  Receipt Date: 20160113
  Transmission Date: 20160526
  Serious: Yes (Other)
  Sender: FDA-Public Use
  Company Number: GB-009507513-1601GBR001367

PATIENT
  Age: 53 Year
  Sex: Male
  Weight: 120 kg

DRUGS (3)
  1. LOTRIDERM [Suspect]
     Active Substance: BETAMETHASONE DIPROPIONATE\CLOTRIMAZOLE
     Indication: PRURITUS
     Route: 061
     Dates: end: 201508
  2. ASPIRIN. [Concomitant]
     Active Substance: ASPIRIN
  3. LYRICA [Concomitant]
     Active Substance: PREGABALIN

REACTIONS (7)
  - Rash macular [Not Recovered/Not Resolved]
  - Peripheral swelling [Not Recovered/Not Resolved]
  - Scrotal pain [Not Recovered/Not Resolved]
  - Paraesthesia [Not Recovered/Not Resolved]
  - Pain [Not Recovered/Not Resolved]
  - Pruritus [Not Recovered/Not Resolved]
  - Burning sensation [Not Recovered/Not Resolved]

NARRATIVE: CASE EVENT DATE: 20151219
